FAERS Safety Report 5084424-8 (Version None)
Quarter: 2006Q3

REPORT INFORMATION
  Report Type: 
  Country: None (occurrence: None)
  Receive Date: 20060821
  Receipt Date: 20051115
  Transmission Date: 20061208
  Serious: Yes (Other)
  Sender: FDA-Public Use
  Company Number: FR-GLAXOSMITHKLINE-B0401459A

PATIENT
  Age: 62 Year
  Sex: Female
  Weight: 87 kg

DRUGS (2)
  1. AVANDAMET [Suspect]
     Dosage: 2TAB PER DAY
     Route: 048
     Dates: start: 20050719, end: 20051004
  2. INSULIN [Concomitant]
     Route: 065

REACTIONS (4)
  - ANAEMIA [None]
  - OEDEMA [None]
  - PARAESTHESIA [None]
  - WEIGHT INCREASED [None]
